FAERS Safety Report 25688447 (Version 1)
Quarter: 2025Q3

REPORT INFORMATION
  Report Type: Spontaneous
  Country: CN (occurrence: CN)
  Receive Date: 20250818
  Receipt Date: 20250818
  Transmission Date: 20251021
  Serious: Yes (Other)
  Sender: BEIGENE
  Company Number: CN-BEIGENE-BGN-2025-013421

PATIENT
  Age: 68 Year

DRUGS (8)
  1. TISLELIZUMAB [Suspect]
     Active Substance: TISLELIZUMAB
     Indication: Gastric cancer
  2. TISLELIZUMAB [Suspect]
     Active Substance: TISLELIZUMAB
     Route: 041
  3. TISLELIZUMAB [Suspect]
     Active Substance: TISLELIZUMAB
     Route: 041
  4. TISLELIZUMAB [Suspect]
     Active Substance: TISLELIZUMAB
  5. DOCETAXEL [Suspect]
     Active Substance: DOCETAXEL
     Indication: Gastric cancer
  6. DOCETAXEL [Suspect]
     Active Substance: DOCETAXEL
     Route: 033
  7. DOCETAXEL [Suspect]
     Active Substance: DOCETAXEL
  8. DOCETAXEL [Suspect]
     Active Substance: DOCETAXEL
     Route: 041

REACTIONS (1)
  - Myelosuppression [Recovering/Resolving]
